FAERS Safety Report 15221990 (Version 1)
Quarter: 2018Q3

REPORT INFORMATION
  Report Type: Spontaneous
  Country: FR (occurrence: FR)
  Receive Date: 20180731
  Receipt Date: 20180731
  Transmission Date: 20181010
  Serious: Yes (Other)
  Sender: FDA-Public Use
  Company Number: FR-ALLERGAN-1837337US

PATIENT
  Age: 46 Year
  Sex: Female
  Weight: 78 kg

DRUGS (3)
  1. ISOMERIDE [Suspect]
     Active Substance: DEXFENFLURAMINE
     Indication: WEIGHT DECREASED
     Dosage: UNK
     Route: 048
     Dates: end: 1993
  2. MEDIATOR [Suspect]
     Active Substance: BENFLUOREX
     Indication: WEIGHT DECREASED
     Dosage: 3 DF, QD
     Route: 048
     Dates: start: 1993, end: 1993
  3. CITALOPRAM HYDROBROMIDE ? BP [Suspect]
     Active Substance: CITALOPRAM HYDROBROMIDE
     Indication: FIBROMYALGIA
     Route: 048
     Dates: start: 2004

REACTIONS (3)
  - Aortic valve incompetence [Not Recovered/Not Resolved]
  - Mitral valve incompetence [Not Recovered/Not Resolved]
  - Product use in unapproved indication [Unknown]

NARRATIVE: CASE EVENT DATE: 20110825
